FAERS Safety Report 8791725 (Version 2)
Quarter: 2013Q1

REPORT INFORMATION
  Report Type: Report from Study
  Country: US (occurrence: US)
  Receive Date: 20120918
  Receipt Date: 20130104
  Transmission Date: 20140127
  Serious: Yes (Hospitalization, Other)
  Sender: FDA-Public Use
  Company Number: US-JNJFOC-20120906320

PATIENT
  Age: 68 None
  Sex: Female

DRUGS (1)
  1. REMICADE [Suspect]
     Indication: CROHN^S DISEASE
     Route: 042
     Dates: start: 20120426

REACTIONS (9)
  - Hepatomegaly [Recovered/Resolved]
  - Helicobacter infection [Unknown]
  - Adrenal mass [Unknown]
  - Tuberculin test positive [Unknown]
  - Radiculopathy [Unknown]
  - Computerised tomogram abnormal [Unknown]
  - Fibromyalgia [Unknown]
  - Myositis [Unknown]
  - Drug-induced liver injury [Unknown]
